FAERS Safety Report 7556669-6 (Version None)
Quarter: 2011Q2

REPORT INFORMATION
  Report Type: 
  Country: None (occurrence: None)
  Receive Date: 20110609
  Receipt Date: 20110530
  Transmission Date: 20111010
  Serious: Yes (Hospitalization)
  Sender: FDA-Public Use
  Company Number: B0724295A

PATIENT
  Age: 55 Year
  Sex: Male

DRUGS (10)
  1. PAROXETINE HYDROCHLORIDE [Suspect]
  2. ASPIRIN [Concomitant]
  3. INSULIN [Concomitant]
  4. MORPHINE [Concomitant]
  5. METHADONE HCL [Suspect]
     Indication: NEURALGIA
  6. AMLODIPINE [Concomitant]
  7. DOXEPIN HCL [Suspect]
  8. CLONAZEPAM [Concomitant]
  9. ENALAPRIL [Concomitant]
  10. FRUSEMIDE [Concomitant]

REACTIONS (5)
  - PULSE ABSENT [None]
  - DRUG INTERACTION [None]
  - SYNCOPE [None]
  - TORSADE DE POINTES [None]
  - LOSS OF CONSCIOUSNESS [None]
